FAERS Safety Report 13646755 (Version 1)
Quarter: 2017Q2

REPORT INFORMATION
  Report Type: Spontaneous
  Country: US (occurrence: US)
  Receive Date: 20170612
  Receipt Date: 20170612
  Transmission Date: 20170830
  Serious: No
  Sender: FDA-Public Use
  Company Number: None

PATIENT
  Age: 59 Year
  Sex: Male

DRUGS (10)
  1. SPIRONOLACTONE. [Concomitant]
     Active Substance: SPIRONOLACTONE
  2. VENTOLIN HFA [Concomitant]
     Active Substance: ALBUTEROL SULFATE
  3. TRIUMEQ [Concomitant]
     Active Substance: ABACAVIR SULFATE\DOLUTEGRAVIR SODIUM\LAMIVUDINE
  4. ACYCLOVIR. [Concomitant]
     Active Substance: ACYCLOVIR
  5. CIALIS [Concomitant]
     Active Substance: TADALAFIL
  6. OPSUMIT [Suspect]
     Active Substance: MACITENTAN
     Indication: PULMONARY ARTERIAL HYPERTENSION
     Route: 048
     Dates: start: 201604
  7. FUROSEMIDE. [Concomitant]
     Active Substance: FUROSEMIDE
  8. MOTRIN [Concomitant]
     Active Substance: IBUPROFEN
  9. DOXYCYCLINE. [Concomitant]
     Active Substance: DOXYCYCLINE
  10. FLUOROURACIL. [Concomitant]
     Active Substance: FLUOROURACIL

REACTIONS (5)
  - Chest pain [None]
  - Back pain [None]
  - Dyspnoea [None]
  - Muscle spasms [None]
  - Chest discomfort [None]

NARRATIVE: CASE EVENT DATE: 20170609
